FAERS Safety Report 10628302 (Version 1)
Quarter: 2014Q4

REPORT INFORMATION
  Report Type: Spontaneous
  Country: US (occurrence: US)
  Receive Date: 20141205
  Receipt Date: 20141205
  Transmission Date: 20150529
  Serious: No
  Sender: FDA-Public Use
  Company Number: US-BRISTOL-MYERS SQUIBB COMPANY-21642533

PATIENT
  Age: 71 Year
  Sex: Female
  Weight: 58.05 kg

DRUGS (2)
  1. WARFARIN SODIUM. [Suspect]
     Active Substance: WARFARIN SODIUM
  2. ENOXAPARIN [Suspect]
     Active Substance: ENOXAPARIN

REACTIONS (1)
  - Injection site haemorrhage [Unknown]
